FAERS Safety Report 8378625-0 (Version None)
Quarter: 2012Q2

REPORT INFORMATION
  Report Type: 
  Country: None (occurrence: None)
  Receive Date: 20120522
  Receipt Date: 20111229
  Transmission Date: 20120825
  Serious: No
  Sender: FDA-Public Use
  Company Number: US-ASTRAZENECA-2011SE79033

PATIENT
  Age: 85 Year
  Sex: Male
  Weight: 81.6 kg

DRUGS (12)
  1. PLAVIX [Concomitant]
  2. CHLORTHALIDONE [Concomitant]
  3. ASPIRIN [Concomitant]
  4. ZANTAC [Concomitant]
  5. PREVACID [Concomitant]
  6. PRILOSEC [Suspect]
     Indication: GASTROOESOPHAGEAL REFLUX DISEASE
     Route: 048
  7. COSAR [Concomitant]
  8. IRON SULFATETHIAMIN COMPOUND TAB [Concomitant]
  9. LIPITOR [Concomitant]
  10. GLUCOPHAGE [Concomitant]
  11. GLUCOTROL [Concomitant]
  12. CLOPIDOGREL [Concomitant]

REACTIONS (1)
  - MUSCLE SPASMS [None]
